FAERS Safety Report 4317009-9 (Version None)
Quarter: 2004Q1

REPORT INFORMATION
  Report Type: 
  Country: None (occurrence: None)
  Receive Date: 20040315
  Receipt Date: 20040303
  Transmission Date: 20041129
  Serious: No
  Sender: FDA-Public Use
  Company Number: TAP2004Q00277

PATIENT
  Sex: Male

DRUGS (1)
  1. PREVACID [Suspect]

REACTIONS (1)
  - DUODENAL ULCER [None]
